FAERS Safety Report 8076610-X (Version None)
Quarter: 2012Q1

REPORT INFORMATION
  Report Type: 
  Country: None (occurrence: None)
  Receive Date: 20120127
  Receipt Date: 20120123
  Transmission Date: 20120608
  Serious: Yes (Hospitalization)
  Sender: FDA-Public Use
  Company Number: JP-B.I. PHARMACEUTICALS,INC./RIDGEFIELD-2012-BP-00999NB

PATIENT
  Age: 79 Year
  Sex: Male

DRUGS (5)
  1. GASMOTIN [Concomitant]
     Route: 065
  2. AZOSELIC [Concomitant]
     Route: 065
  3. PRADAXA [Suspect]
     Route: 065
  4. MAGNESIUM SULFATE [Concomitant]
     Route: 065
  5. ARICEPT [Concomitant]
     Route: 065

REACTIONS (2)
  - PLEURAL EFFUSION [None]
  - OEDEMA [None]
